FAERS Safety Report 5493214-3 (Version None)
Quarter: 2007Q4

REPORT INFORMATION
  Report Type: 
  Country: None (occurrence: None)
  Receive Date: 20071023
  Receipt Date: 20071015
  Transmission Date: 20080405
  Serious: Yes (Hospitalization, Other)
  Sender: FDA-Public Use
  Company Number: B0489731A

PATIENT
  Age: 54 Year
  Sex: Female
  Weight: 59.5 kg

DRUGS (9)
  1. TYKERB [Suspect]
     Indication: BREAST CANCER
     Dosage: 1250MG PER DAY
     Route: 048
     Dates: start: 20070815, end: 20070925
  2. XELODA [Concomitant]
     Indication: BREAST CANCER
     Dosage: 1500MG TWICE PER DAY
     Route: 048
     Dates: start: 20070817, end: 20070924
  3. VOLTAREN [Concomitant]
     Indication: PAIN
     Dosage: 50MG TWICE PER DAY
     Route: 048
     Dates: start: 20070915, end: 20070924
  4. DEXAMETHASONE 0.5MG TAB [Concomitant]
     Dosage: 80MG PER DAY
     Route: 065
     Dates: start: 20070312
  5. UNKNOWN DRUG [Concomitant]
     Indication: HYPERTENSION
     Route: 065
  6. DIAZEPAM [Concomitant]
     Indication: ANXIETY
     Dosage: 2.5MG TWICE PER DAY
     Route: 065
     Dates: start: 20070301
  7. SERTRALINE [Concomitant]
     Indication: DEPRESSION
     Dosage: 50MG PER DAY
     Route: 065
     Dates: start: 20070301
  8. NEXIUM [Concomitant]
     Indication: ILL-DEFINED DISORDER
     Dosage: 40MG PER DAY
     Route: 065
     Dates: start: 20070301
  9. MICARDIS [Concomitant]
     Dosage: 80MG PER DAY
     Route: 065

REACTIONS (2)
  - COLITIS [None]
  - DIARRHOEA HAEMORRHAGIC [None]
